FAERS Safety Report 9598796 (Version 1)
Quarter: 2013Q4

REPORT INFORMATION
  Report Type: Spontaneous
  Country: US (occurrence: US)
  Receive Date: 20131004
  Receipt Date: 20131004
  Transmission Date: 20140711
  Serious: No
  Sender: FDA-Public Use
  Company Number: US-AMGEN-USASP2013025627

PATIENT
  Age: 56 Year
  Sex: Male
  Weight: 142.86 kg

DRUGS (8)
  1. ENBREL [Suspect]
     Indication: PRODUCT USED FOR UNKNOWN INDICATION
     Dosage: 50 MG, QWK
     Route: 058
  2. FISH OIL [Concomitant]
     Dosage: UNK
  3. METFORMIN ER [Concomitant]
     Dosage: 750 MG, UNK
  4. GLIMEPIRIDE [Concomitant]
     Dosage: 1 MG, UNK
  5. FOLIC ACID [Concomitant]
     Dosage: 20 MG, UNK
  6. METHOTREXATE [Concomitant]
     Dosage: 1 G, UNK
  7. DIOVAN [Concomitant]
     Dosage: 320 MG, UNK
  8. ATARAX                             /00058401/ [Concomitant]
     Dosage: 10 MG/ML, UNK

REACTIONS (1)
  - Drug ineffective [Unknown]
